FAERS Safety Report 7957151-4 (Version None)
Quarter: 2011Q4

REPORT INFORMATION
  Report Type: 
  Country: None (occurrence: None)
  Receive Date: 20111205
  Receipt Date: 20111128
  Transmission Date: 20120403
  Serious: Yes (Other)
  Sender: FDA-Public Use
  Company Number: US-BAYER-2011-114350

PATIENT
  Sex: Female

DRUGS (4)
  1. MIRENA [Suspect]
     Indication: CONTRACEPTION
     Dosage: 20 MCG/24HR, CONT
     Route: 015
     Dates: start: 20110201
  2. ADVAIR DISKUS 100/50 [Concomitant]
  3. ANTIBIOTICS [Concomitant]
  4. PREDNISONE TAB [Concomitant]

REACTIONS (6)
  - PRESYNCOPE [None]
  - SKIN DISCOLOURATION [None]
  - VAGINAL HAEMORRHAGE [None]
  - HYPERAESTHESIA [None]
  - ABDOMINAL PAIN [None]
  - SWELLING [None]
